FAERS Safety Report 9900758 (Version 2)
Quarter: 2014Q1

REPORT INFORMATION
  Report Type: Spontaneous
  Country: GB (occurrence: GB)
  Receive Date: 20140217
  Receipt Date: 20140318
  Transmission Date: 20141002
  Serious: Yes (Other)
  Sender: FDA-Public Use
  Company Number: GB-JNJFOC-20140203056

PATIENT
  Age: 11 Week
  Sex: Female

DRUGS (2)
  1. CALPOL [Suspect]
     Route: 065
  2. CALPOL [Suspect]
     Indication: PRODUCT USED FOR UNKNOWN INDICATION
     Route: 065

REACTIONS (3)
  - Choking [Unknown]
  - Breath sounds abnormal [Unknown]
  - Syringe issue [Unknown]
